FAERS Safety Report 7485260-5 (Version None)
Quarter: 2011Q2

REPORT INFORMATION
  Report Type: 
  Country: None (occurrence: None)
  Receive Date: 20110517
  Receipt Date: 20110513
  Transmission Date: 20111010
  Serious: Yes (Hospitalization)
  Sender: FDA-Public Use
  Company Number: IT-ROCHE-777376

PATIENT
  Sex: Male

DRUGS (1)
  1. ROCEPHIN [Suspect]
     Dosage: FREQUENCY: DAILY
     Route: 030
     Dates: start: 20110308, end: 20110308

REACTIONS (4)
  - HYPERHIDROSIS [None]
  - HEADACHE [None]
  - PRURITUS [None]
  - VOMITING [None]
